FAERS Safety Report 6256945-3 (Version None)
Quarter: 2009Q3

REPORT INFORMATION
  Report Type: 
  Country: None (occurrence: None)
  Receive Date: 20090706
  Receipt Date: 20090609
  Transmission Date: 20100115
  Serious: Yes (Death, Other)
  Sender: FDA-Public Use
  Company Number: US-ROCHE-641443

PATIENT
  Age: 61 Year
  Sex: Male

DRUGS (4)
  1. DACLIZUMAB [Suspect]
     Route: 065
  2. MYCOPHENOLATE MOFETIL [Suspect]
     Route: 065
  3. PROGRAF [Suspect]
     Route: 065
  4. CORTICOSTEROID NOS [Suspect]
     Route: 065

REACTIONS (4)
  - MYCOBACTERIUM KANSASII INFECTION [None]
  - PSEUDOMONAS INFECTION [None]
  - SEPSIS [None]
  - STRONGYLOIDIASIS [None]
